FAERS Safety Report 20752181 (Version 4)
Quarter: 2022Q2

REPORT INFORMATION
  Report Type: Report from Study
  Country: US (occurrence: US)
  Receive Date: 20220426
  Receipt Date: 20220613
  Transmission Date: 20220721
  Serious: Yes (Death)
  Sender: FDA-Public Use
  Company Number: US-NOVARTISTESTPH-NVSC2022US095181

PATIENT
  Sex: Male

DRUGS (7)
  1. ILARIS [Suspect]
     Active Substance: CANAKINUMAB
     Indication: Juvenile idiopathic arthritis
     Dosage: 57 MG
     Route: 058
     Dates: start: 20210126
  2. ILARIS [Suspect]
     Active Substance: CANAKINUMAB
     Dosage: 57 MG
     Route: 058
     Dates: start: 20210303
  3. ILARIS [Suspect]
     Active Substance: CANAKINUMAB
     Dosage: 57 MG
     Route: 058
     Dates: start: 20210402
  4. ILARIS [Suspect]
     Active Substance: CANAKINUMAB
     Dosage: 57 MG, EVERY 4 WEEKS
     Route: 058
     Dates: start: 20210930
  5. ILARIS [Suspect]
     Active Substance: CANAKINUMAB
     Dosage: 57 MG
     Route: 058
     Dates: start: 20211104
  6. ILARIS [Suspect]
     Active Substance: CANAKINUMAB
     Dosage: 57 MG
     Route: 058
     Dates: start: 20211201
  7. ILARIS [Suspect]
     Active Substance: CANAKINUMAB
     Dosage: 57 MG
     Route: 058
     Dates: start: 20211229

REACTIONS (5)
  - Death [Fatal]
  - Dry skin [Unknown]
  - Pyrexia [Unknown]
  - Nasopharyngitis [Unknown]
  - Respiratory symptom [Unknown]
